FAERS Safety Report 5811599-2 (Version None)
Quarter: 2008Q3

REPORT INFORMATION
  Report Type: 
  Country: None (occurrence: None)
  Receive Date: 20080711
  Receipt Date: 20080711
  Transmission Date: 20090109
  Serious: Yes (Disabling)
  Sender: FDA-Public Use
  Company Number: None

PATIENT
  Age: 81 Year
  Sex: Female
  Weight: 53.5244 kg

DRUGS (1)
  1. LEVAQUIN [Suspect]
     Indication: SINUSITIS
     Dosage: 500 MGS DAILY ORAL
     Route: 048
     Dates: start: 20080410, end: 20080423

REACTIONS (5)
  - ARTHRALGIA [None]
  - IMPAIRED HEALING [None]
  - JOINT STIFFNESS [None]
  - RASH [None]
  - SKIN BURNING SENSATION [None]
